FAERS Safety Report 22093846 (Version 4)
Quarter: 2023Q2

REPORT INFORMATION
  Report Type: Report from Study
  Country: US (occurrence: US)
  Receive Date: 20230314
  Receipt Date: 20230412
  Transmission Date: 20230721
  Serious: Yes (Hospitalization, Other)
  Sender: FDA-Public Use
  Company Number: US-BRISTOL-MYERS SQUIBB COMPANY-2023-021850

PATIENT
  Age: 88 Year
  Sex: Male
  Weight: 83.91 kg

DRUGS (22)
  1. AZACITIDINE [Suspect]
     Active Substance: AZACITIDINE
     Indication: Myelodysplastic syndrome
     Dosage: FREQ: AZACITIDINE FOR 4 DAYS,FOLLOWED BY 3 DAYS OF REST,THEN 3 DAYS OF AZACITIDINE    . EVERY 28 DAY
     Route: 058
     Dates: start: 20230123, end: 20230201
  2. LUSPATERCEPT [Suspect]
     Active Substance: LUSPATERCEPT
     Indication: Myelodysplastic syndrome
     Route: 058
     Dates: start: 20221019, end: 20230208
  3. LUSPATERCEPT [Suspect]
     Active Substance: LUSPATERCEPT
     Indication: Anaemia
  4. ALBUTEROL [Concomitant]
     Active Substance: ALBUTEROL
     Indication: Dyspnoea
     Route: 055
     Dates: start: 20191025
  5. ALBUTEROL [Concomitant]
     Active Substance: ALBUTEROL
     Indication: Dyspnoea
     Dosage: 3 ML VIA 4X/DAY PRN NEBULIZER
     Dates: start: 20220809
  6. ONDANSETRON [Concomitant]
     Active Substance: ONDANSETRON
     Indication: Nausea
     Dosage: PRN
     Route: 048
     Dates: start: 20230118
  7. ONDANSETRON [Concomitant]
     Active Substance: ONDANSETRON
     Indication: Vomiting
  8. OMEPRAZOLE [Concomitant]
     Active Substance: OMEPRAZOLE
     Indication: Hyperchlorhydria
     Route: 048
     Dates: start: 20090311
  9. CARBOXYMETHYLCELLULOSE [Concomitant]
     Active Substance: CARBOXYMETHYLCELLULOSE
     Indication: Dry eye
     Dosage: 0.5 %, 1 GTT IN BOTH EYES QID
     Dates: start: 20221025
  10. DOCUSATE SODIUM\SENNOSIDES A AND B [Concomitant]
     Active Substance: DOCUSATE SODIUM\SENNOSIDES A AND B
     Indication: Faeces hard
     Dosage: 50 MG/8.6 MG TABLET; 2 TABLETS BID PRN
     Route: 048
     Dates: start: 20120806
  11. FLUTICASONE PROPIONATE\SALMETEROL XINAFOATE [Concomitant]
     Active Substance: FLUTICASONE PROPIONATE\SALMETEROL XINAFOATE
     Indication: Dyspnoea
     Dosage: 1 DOSE BY MOUTH BID
     Route: 048
     Dates: start: 20211123
  12. GUAIFENESIN [Concomitant]
     Active Substance: GUAIFENESIN
     Indication: Nasal congestion
     Dosage: 2 TABS (200 MG TAB EACH EVERY 4 HRS PRN)
     Route: 048
     Dates: start: 20221228, end: 20230222
  13. CALCIUM [Concomitant]
     Active Substance: CALCIUM
     Indication: Supplementation therapy
     Dosage: CALCIUM 600 MG
     Route: 048
     Dates: start: 20100201, end: 20230222
  14. ERGOCALCIFEROL [Concomitant]
     Active Substance: ERGOCALCIFEROL
     Indication: Supplementation therapy
     Dosage: 400 UNIT BID
     Route: 048
     Dates: start: 20100201, end: 20230222
  15. ROSUVASTATIN [Concomitant]
     Active Substance: ROSUVASTATIN
     Indication: Blood cholesterol
     Dosage: TAKE ONE HALF TAB (5 MG EACH) QD
     Route: 048
     Dates: start: 20220527, end: 20230222
  16. FERROUS SULFATE [Concomitant]
     Active Substance: FERROUS SULFATE
     Indication: Mineral supplementation
     Dosage: 1 TAB 325 MG EVERY OTHER DAY
     Route: 048
     Dates: start: 20220526, end: 20230222
  17. MONTELUKAST [Concomitant]
     Active Substance: MONTELUKAST SODIUM
     Indication: Dyspnoea
     Route: 048
     Dates: start: 20210909, end: 20230222
  18. FILGRASTIM [Concomitant]
     Active Substance: FILGRASTIM
     Indication: White blood cell disorder
     Dosage: SWITCHED FROM GRANIX TO ZARXIO 22-JUN-2022
     Route: 058
     Dates: start: 20220119, end: 20230215
  19. ELTROMBOPAG [Concomitant]
     Active Substance: ELTROMBOPAG
     Indication: Platelet disorder
     Dosage: INITIALLY 50MG QD THEN INCREASED TO 75MG QD THEN INCREASED TO 150MG QD
     Route: 048
     Dates: start: 20220527, end: 20230215
  20. ELTROMBOPAG [Concomitant]
     Active Substance: ELTROMBOPAG
     Route: 048
  21. ELTROMBOPAG [Concomitant]
     Active Substance: ELTROMBOPAG
     Route: 048
  22. DARBEPOETIN ALFA [Concomitant]
     Active Substance: DARBEPOETIN ALFA
     Indication: Anaemia
     Dosage: INITIALLY 200MCG Q2WEEKS THEN INCREASED TO 500MCG Q2WEEKS
     Route: 058
     Dates: start: 20220119, end: 20230215

REACTIONS (7)
  - Fatigue [Not Recovered/Not Resolved]
  - Febrile neutropenia [Not Recovered/Not Resolved]
  - Oral herpes [Unknown]
  - Streptococcal bacteraemia [Unknown]
  - Endocarditis [Unknown]
  - Off label use [Unknown]
  - Prescribed overdose [Unknown]

NARRATIVE: CASE EVENT DATE: 20230208
